FAERS Safety Report 20325016 (Version 1)
Quarter: 2022Q1

REPORT INFORMATION
  Report Type: Spontaneous
  Country: CN (occurrence: CN)
  Receive Date: 20220111
  Receipt Date: 20220111
  Transmission Date: 20220424
  Serious: Yes (Other)
  Sender: FDA-Public Use
  Company Number: CN-SA-SAC20220110000064

PATIENT
  Age: 64 Year
  Sex: Male
  Weight: 70 kg

DRUGS (2)
  1. ELOXATIN [Suspect]
     Active Substance: OXALIPLATIN
     Indication: Neoplasm prophylaxis
     Dosage: 200 MG, 1X
     Route: 041
     Dates: start: 20211224, end: 20211224
  2. DEXTROSE [Concomitant]
     Active Substance: DEXTROSE
     Dosage: 500 ML, 1X
     Route: 041
     Dates: start: 20211224, end: 20211224

REACTIONS (2)
  - Pruritus [Recovered/Resolved]
  - Rash [Recovered/Resolved]

NARRATIVE: CASE EVENT DATE: 20211224
